FAERS Safety Report 14242594 (Version 2)
Quarter: 2017Q4

REPORT INFORMATION
  Report Type: Report from Study
  Country: IN (occurrence: IN)
  Receive Date: 20171201
  Receipt Date: 20171212
  Transmission Date: 20180321
  Serious: Yes (Hospitalization, Other)
  Sender: FDA-Public Use
  Company Number: IN-INCYTE CORPORATION-2017IN010213

PATIENT

DRUGS (1)
  1. JAKAVI [Suspect]
     Active Substance: RUXOLITINIB
     Indication: PRIMARY MYELOFIBROSIS
     Dosage: 15 MG, BID
     Route: 048
     Dates: start: 201703, end: 20171125

REACTIONS (4)
  - White blood cell count increased [Recovering/Resolving]
  - Headache [Not Recovered/Not Resolved]
  - Anaemia [Recovering/Resolving]
  - Asthenia [Not Recovered/Not Resolved]

NARRATIVE: CASE EVENT DATE: 201711
